FAERS Safety Report 8154431-7 (Version None)
Quarter: 2012Q1

REPORT INFORMATION
  Report Type: 
  Country: None (occurrence: None)
  Receive Date: 20120221
  Receipt Date: 20120214
  Transmission Date: 20120608
  Serious: Yes (Hospitalization)
  Sender: FDA-Public Use
  Company Number: FR-VALEANT-2012VX000721

PATIENT
  Sex: Female

DRUGS (1)
  1. PROSTIGMIN BROMIDE [Suspect]
     Indication: NEUROMUSCULAR BLOCKADE REVERSAL
     Route: 065
     Dates: start: 20111216, end: 20111216

REACTIONS (1)
  - ANAPHYLACTIC SHOCK [None]
